FAERS Safety Report 5447425-3 (Version None)
Quarter: 2007Q3

REPORT INFORMATION
  Report Type: 
  Country: None (occurrence: None)
  Receive Date: 20070905
  Receipt Date: 20070821
  Transmission Date: 20080115
  Serious: Yes (Other)
  Sender: FDA-Public Use
  Company Number: 2007-02865

PATIENT
  Age: 66 Year
  Sex: Female
  Weight: 53 kg

DRUGS (1)
  1. VELCADE [Suspect]
     Indication: MULTIPLE MYELOMA
     Dosage: INTRAVENOUS
     Route: 042

REACTIONS (12)
  - ACQUIRED DIAPHRAGMATIC EVENTRATION [None]
  - ASCITES [None]
  - ATELECTASIS [None]
  - BONE DISORDER [None]
  - LUNG DISORDER [None]
  - LYMPHADENOPATHY [None]
  - MASS [None]
  - NEPHROLITHIASIS [None]
  - OSTEOSCLEROSIS [None]
  - PLEURAL EFFUSION [None]
  - PNEUMONIA [None]
  - SOFT TISSUE DISORDER [None]
